FAERS Safety Report 8887587 (Version 1)
Quarter: 2012Q4

REPORT INFORMATION
  Report Type: Spontaneous
  Country: GB (occurrence: None)
  Receive Date: 20121031
  Receipt Date: 20121031
  Transmission Date: 20130627
  Serious: Yes (Death, Hospitalization, Other)
  Sender: FDA-Public Use
  Company Number: GB-023259

PATIENT
  Age: 3 Year
  Sex: Male
  Weight: 15.9 kg

DRUGS (9)
  1. BUSULFAN [Suspect]
     Indication: BONE MARROW TRANSPLANT
     Dosage: 64 MILLIGRAM (16 MILLIGRAM, 4 IN 1 DAYS), ORAL
     Dates: start: 20110103, end: 20110106
  2. METHOTREXATE [Suspect]
     Dosage: 6.8 MILLIGRAM (6.8 MILLIGRAM, 1 IN 1 DAYS), INTRAVENOUS
     Route: 042
     Dates: start: 20110116, end: 20110116
  3. METHOTREXATE [Suspect]
     Dosage: 6.8 MILLIGRAM (6.8 MILLIGRAM, 1 IN 1 DAYS), INTRAVENOUS
     Dates: start: 20110119, end: 20110119
  4. CYTOMEGALOVIRUS IMMUNE GLOBULIN HUMAN [Suspect]
  5. CYCLOPHOSPHAMIDE [Concomitant]
  6. ALEMTUZUMAB [Concomitant]
  7. CICLOSPORIN [Concomitant]
  8. THIOTEPA [Concomitant]
  9. DEAFERRIOXAMINE [Concomitant]

REACTIONS (4)
  - Venoocclusive disease [None]
  - Lung consolidation [None]
  - Pneumonia cytomegaloviral [None]
  - Acidosis [None]
